FAERS Safety Report 21935262 (Version 3)
Quarter: 2023Q1

REPORT INFORMATION
  Report Type: Spontaneous
  Country: PA (occurrence: PA)
  Receive Date: 20230201
  Receipt Date: 20230224
  Transmission Date: 20230418
  Serious: No
  Sender: FDA-Public Use
  Company Number: PA-PFIZER INC-PV202300009325

PATIENT
  Age: 13 Year
  Sex: Male

DRUGS (1)
  1. GENOTROPIN [Suspect]
     Active Substance: SOMATROPIN
     Indication: Growth disorder
     Dosage: 1.6 MG, 1X/DAY
     Route: 058

REACTIONS (3)
  - Device use issue [Unknown]
  - Product dose omission issue [Recovered/Resolved]
  - Device mechanical issue [Unknown]
